FAERS Safety Report 6635727-4 (Version None)
Quarter: 2010Q1

REPORT INFORMATION
  Report Type: 
  Country: None (occurrence: None)
  Receive Date: 20100311
  Receipt Date: 20100311
  Transmission Date: 20100710
  Serious: Yes (Hospitalization)
  Sender: FDA-Public Use
  Company Number: None

PATIENT
  Age: 78 Year
  Sex: Male
  Weight: 89.4 kg

DRUGS (2)
  1. HEPARIN SODIUM [Suspect]
     Indication: AORTIC VALVE REPLACEMENT
     Dosage: 30000 UNITS ONE TIME IV BOLUS
     Route: 040
     Dates: start: 20100210, end: 20100210
  2. HEPARIN SODIUM [Suspect]
     Indication: MITRAL VALVE REPLACEMENT
     Dosage: 30000 UNITS ONE TIME IV BOLUS
     Route: 040
     Dates: start: 20100210, end: 20100210

REACTIONS (1)
  - HEPARIN-INDUCED THROMBOCYTOPENIA [None]
